FAERS Safety Report 19977191 (Version 1)
Quarter: 2021Q4

REPORT INFORMATION
  Report Type: Other
  Country: US (occurrence: US)
  Receive Date: 20211021
  Receipt Date: 20211021
  Transmission Date: 20220303
  Serious: Yes (Other)
  Sender: FDA-Public Use
  Company Number: US-ROCHE-2939690

PATIENT

DRUGS (1)
  1. BEVACIZUMAB [Suspect]
     Active Substance: BEVACIZUMAB
     Indication: Glioblastoma
     Route: 013

REACTIONS (5)
  - Seizure [Recovered/Resolved]
  - Tumour haemorrhage [Unknown]
  - Aphasia [Unknown]
  - Deep vein thrombosis [Unknown]
  - Pulmonary embolism [Unknown]
